FAERS Safety Report 19680272 (Version 1)
Quarter: 2021Q3

REPORT INFORMATION
  Report Type: Report from Study
  Country: CL (occurrence: CL)
  Receive Date: 20210810
  Receipt Date: 20210810
  Transmission Date: 20211014
  Serious: Yes (Other)
  Sender: FDA-Public Use
  Company Number: CL-UCBSA-2021037004

PATIENT
  Age: 78 Year
  Sex: Male

DRUGS (10)
  1. LEVODOPA BENSERAZIDE [Concomitant]
     Active Substance: BENSERAZIDE\LEVODOPA
     Indication: PARKINSON^S DISEASE
     Dosage: 750/187.5 ONCE DAILY
     Route: 048
  2. PAROXETINE. [Concomitant]
     Active Substance: PAROXETINE
     Indication: DEMENTIA
     Dosage: 10 MILLIGRAM, ONCE DAILY (QD)
     Route: 048
  3. CLONAZEPAM. [Concomitant]
     Active Substance: CLONAZEPAM
     Indication: PARKINSON^S DISEASE
     Dosage: .25 MILLIGRAM, ONCE DAILY (QD)
     Route: 048
  4. ROTIGOTINE [Suspect]
     Active Substance: ROTIGOTINE
     Dosage: 1.5 MILLIGRAM, ONCE DAILY (QD)
     Route: 062
     Dates: start: 20210721
  5. QUETIAPINE. [Concomitant]
     Active Substance: QUETIAPINE
     Indication: PARKINSON^S DISEASE
     Dosage: 100 MILLIGRAM, ONCE DAILY (QD)
     Route: 048
  6. LAMOTRIGINE. [Concomitant]
     Active Substance: LAMOTRIGINE
     Indication: DEMENTIA
     Dosage: 50 MILLIGRAM, ONCE DAILY (QD)
     Route: 048
     Dates: start: 202008
  7. RASAGILINE. [Concomitant]
     Active Substance: RASAGILINE
     Indication: PARKINSON^S DISEASE
     Dosage: 1 MILLIGRAM, ONCE DAILY (QD)
     Route: 048
  8. ROTIGOTINE [Suspect]
     Active Substance: ROTIGOTINE
     Indication: PARKINSON^S DISEASE
     Dosage: 3 MILLIGRAM, ONCE DAILY (QD)
     Route: 062
     Dates: start: 20200801, end: 20210720
  9. LEVETIRACETAM. [Concomitant]
     Active Substance: LEVETIRACETAM
     Indication: EPILEPSY
     Dosage: 2000 MILLIGRAM, ONCE DAILY (QD)
     Route: 048
  10. SERTRALINE [Concomitant]
     Active Substance: SERTRALINE HYDROCHLORIDE
     Indication: DEPRESSION
     Dosage: 75 MILLIGRAM, ONCE DAILY (QD)
     Route: 048

REACTIONS (4)
  - Seizure [Recovering/Resolving]
  - Autonomic nervous system imbalance [Recovering/Resolving]
  - Off label use [Unknown]
  - Hypotension [Recovering/Resolving]

NARRATIVE: CASE EVENT DATE: 20210715
